FAERS Safety Report 11500700 (Version 3)
Quarter: 2015Q3

REPORT INFORMATION
  Report Type: Spontaneous
  Country: IT (occurrence: IT)
  Receive Date: 20150914
  Receipt Date: 20150924
  Transmission Date: 20151125
  Serious: Yes (Hospitalization)
  Sender: FDA-Public Use
  Company Number: IT-SA-2015SA137409

PATIENT
  Age: 63 Year
  Sex: Male

DRUGS (2)
  1. AVAPRO [Suspect]
     Active Substance: IRBESARTAN
     Indication: HYPERTENSION
     Route: 048
     Dates: start: 20150101, end: 20150625
  2. ADALAT CRONO [Suspect]
     Active Substance: NIFEDIPINE
     Indication: HYPERTENSION
     Dosage: MODIFIED-RELEASE TABLETS
     Route: 048
     Dates: start: 20150101, end: 20150625

REACTIONS (2)
  - Hypertensive crisis [Recovered/Resolved]
  - Drug ineffective [Unknown]

NARRATIVE: CASE EVENT DATE: 20150625
